FAERS Safety Report 6780470-4 (Version None)
Quarter: 2010Q2

REPORT INFORMATION
  Report Type: 
  Country: None (occurrence: None)
  Receive Date: 20100621
  Receipt Date: 20100611
  Transmission Date: 20101027
  Serious: Yes (Hospitalization)
  Sender: FDA-Public Use
  Company Number: BR-BIOGENIDEC-2010BI020147

PATIENT
  Age: 28 Year
  Sex: Female

DRUGS (3)
  1. AVONEX [Suspect]
     Indication: MULTIPLE SCLEROSIS
     Dosage: DOSE UNIT:30
     Route: 030
     Dates: start: 20090401, end: 20100601
  2. BACLOFEN [Concomitant]
     Indication: MUSCLE SPASMS
  3. TIZANIDINE HYDROCHLORIDE [Concomitant]
     Indication: MUSCLE SPASMS

REACTIONS (5)
  - GASTRITIS [None]
  - HEADACHE [None]
  - HYSTERECTOMY [None]
  - MULTIPLE SCLEROSIS RELAPSE [None]
  - POLYPECTOMY [None]
